FAERS Safety Report 7026493-1 (Version None)
Quarter: 2010Q4

REPORT INFORMATION
  Report Type: 
  Country: None (occurrence: None)
  Receive Date: 20101004
  Receipt Date: 20100922
  Transmission Date: 20110411
  Serious: No
  Sender: FDA-Public Use
  Company Number: US-PFIZER INC-2010121763

PATIENT
  Sex: Male
  Weight: 68.027 kg

DRUGS (7)
  1. CHANTIX [Suspect]
     Indication: SMOKING CESSATION THERAPY
     Dosage: 1 MG, 2X/DAY
     Route: 048
     Dates: start: 20100907, end: 20100921
  2. CELEBREX [Concomitant]
     Indication: ARTHRITIS
     Dosage: 500 MG, 2X/DAY
     Route: 048
  3. ATENOLOL [Concomitant]
     Dosage: 25 MG, 1X/DAY
     Route: 048
  4. RAMIPRIL [Concomitant]
     Indication: CARDIAC DISORDER
     Dosage: 10 MG, 1X/DAY
     Route: 048
  5. LIPITOR [Concomitant]
     Indication: BLOOD CHOLESTEROL INCREASED
     Dosage: 10 MG, 1X/DAY
     Route: 048
  6. NEURONTIN [Concomitant]
     Indication: NEUROPATHY PERIPHERAL
     Dosage: 600 MG, 3X/DAY
     Route: 048
  7. PLAVIX [Concomitant]
     Indication: GASTRIC ULCER
     Dosage: 75 MG, 1X/DAY
     Route: 048

REACTIONS (2)
  - NAUSEA [None]
  - VOMITING [None]
